FAERS Safety Report 21492694 (Version 1)
Quarter: 2022Q4

REPORT INFORMATION
  Report Type: Spontaneous
  Country: US (occurrence: None)
  Receive Date: 20221020
  Receipt Date: 20221020
  Transmission Date: 20230112
  Serious: No
  Sender: FDA-Public Use
  Company Number: None

PATIENT
  Age: 65 Year
  Sex: Male
  Weight: 75.6 kg

DRUGS (3)
  1. RITUXAN [Suspect]
     Active Substance: RITUXIMAB
     Indication: Connective tissue disorder
     Route: 042
  2. DIPHENHYDRAMINE [Concomitant]
     Active Substance: DIPHENHYDRAMINE
  3. MAPAP 1000MG [Concomitant]

REACTIONS (4)
  - Dyspnoea [None]
  - Anxiety [None]
  - Respiration abnormal [None]
  - Infusion related reaction [None]

NARRATIVE: CASE EVENT DATE: 20221018
